FAERS Safety Report 6769527-1 (Version None)
Quarter: 2010Q2

REPORT INFORMATION
  Report Type: 
  Country: None (occurrence: None)
  Receive Date: 20100608
  Receipt Date: 20100601
  Transmission Date: 20101027
  Serious: Yes (Other)
  Sender: FDA-Public Use
  Company Number: 2010SP021016

PATIENT
  Age: 71 Year
  Sex: Female
  Weight: 95 kg

DRUGS (14)
  1. ROCURONIUM BROMIDE [Suspect]
     Indication: INDUCTION OF ANAESTHESIA
     Dosage: 50 MG; ONCE; IV, 50 MG; ONCE; IV
     Route: 042
     Dates: start: 20100409, end: 20100409
  2. ROCURONIUM BROMIDE [Suspect]
     Indication: INDUCTION OF ANAESTHESIA
     Dosage: 50 MG; ONCE; IV, 50 MG; ONCE; IV
     Route: 042
     Dates: start: 20100409, end: 20100409
  3. TRIATEC [Concomitant]
  4. TRANSIPEG [Concomitant]
  5. DEBRIDAT [Concomitant]
  6. LEVOTHYROXINE SODIUM [Concomitant]
  7. SEVORANE [Concomitant]
  8. SUFENTANIL [Concomitant]
  9. PROPOFOL [Concomitant]
  10. SULFARLEM [Concomitant]
  11. QUESTRAN [Concomitant]
  12. DURAGESIC-100 [Concomitant]
  13. COVERSYL [Concomitant]
  14. LOVENOX [Concomitant]

REACTIONS (1)
  - NEUROMUSCULAR BLOCK PROLONGED [None]
